FAERS Safety Report 8059323-X (Version None)
Quarter: 2012Q1

REPORT INFORMATION
  Report Type: 
  Country: None (occurrence: None)
  Receive Date: 20120120
  Receipt Date: 20120117
  Transmission Date: 20120608
  Serious: Yes (Other)
  Sender: FDA-Public Use
  Company Number: US-CELGENEUS-163-21880-11020495

PATIENT
  Sex: Male
  Weight: 78.47 kg

DRUGS (12)
  1. REVLIMID [Suspect]
     Dosage: 10 MILLIGRAM
     Route: 048
     Dates: start: 20110117
  2. AMBIEN [Concomitant]
     Indication: INSOMNIA
     Dosage: 10 MILLIGRAM
     Route: 048
     Dates: start: 20101214
  3. DEXAMETHASONE TAB [Concomitant]
     Dosage: 4 MILLIGRAM
     Route: 048
     Dates: start: 20101214
  4. VITAMIN D [Concomitant]
     Dosage: 2000 UNIT
     Route: 048
     Dates: start: 20101214
  5. VELCADE [Concomitant]
     Dosage: 3.5 MILLIGRAM
     Route: 050
     Dates: start: 20101214
  6. FISH OIL [Concomitant]
     Dosage: 500-100MG
     Route: 048
     Dates: start: 20101214
  7. VITAMIN B COMPLEX CAP [Concomitant]
     Route: 048
     Dates: start: 20101214
  8. PREDNISONE [Concomitant]
     Dosage: 20 MILLIGRAM
     Route: 048
     Dates: start: 20101214
  9. REVLIMID [Suspect]
     Indication: MULTIPLE MYELOMA
     Dosage: 10 MILLIGRAM
     Route: 048
     Dates: start: 20101201, end: 20110101
  10. ASPIRIN [Concomitant]
     Dosage: 325 MILLIGRAM
     Route: 048
     Dates: start: 20101214
  11. NEXIUM [Concomitant]
     Dosage: 40 MILLIGRAM
     Route: 048
     Dates: start: 20101214
  12. IRON [Concomitant]
     Dosage: 325 MILLIGRAM
     Route: 048
     Dates: start: 20101214

REACTIONS (2)
  - SKIN ULCER [None]
  - IMPAIRED HEALING [None]
